FAERS Safety Report 7827905-3 (Version None)
Quarter: 2011Q4

REPORT INFORMATION
  Report Type: 
  Country: None (occurrence: None)
  Receive Date: 20111020
  Receipt Date: 20111007
  Transmission Date: 20120403
  Serious: Yes (Hospitalization)
  Sender: FDA-Public Use
  Company Number: DE-ELI_LILLY_AND_COMPANY-DE201109005809

PATIENT
  Age: 55 Year
  Sex: Female

DRUGS (10)
  1. ANALGESICS [Concomitant]
  2. RAMIPRIL [Concomitant]
  3. HYDROCHLOROTHIAZID [Concomitant]
  4. FEXOFENADINE HCL [Concomitant]
  5. ERGOCALCIFEROL [Concomitant]
  6. FORTEO [Suspect]
     Indication: OSTEOPOROSIS
     Dosage: UNK, QD
     Route: 058
     Dates: start: 20110901
  7. INSULIN [Concomitant]
  8. ALLOPURINOL [Concomitant]
  9. SIMVASTATIN [Concomitant]
  10. METFORMIN HCL [Concomitant]

REACTIONS (5)
  - ARTHROPATHY [None]
  - MUSCLE SPASMS [None]
  - LOWER LIMB FRACTURE [None]
  - JOINT EFFUSION [None]
  - OSTEOARTHRITIS [None]
